FAERS Safety Report 5233187-1 (Version None)
Quarter: 2007Q1

REPORT INFORMATION
  Report Type: 
  Country: None (occurrence: None)
  Receive Date: 20070207
  Receipt Date: 20070126
  Transmission Date: 20070707
  Serious: Yes (Death, Hospitalization, Other)
  Sender: FDA-Public Use
  Company Number: PFIZER INC-2007008239

PATIENT
  Sex: Male
  Weight: 72.6 kg

DRUGS (1)
  1. BEXTRA [Suspect]
     Indication: ARTHRITIS
     Route: 048
     Dates: start: 20031201, end: 20040401

REACTIONS (1)
  - MYOCARDIAL INFARCTION [None]
